FAERS Safety Report 21286053 (Version 2)
Quarter: 2022Q4

REPORT INFORMATION
  Report Type: Spontaneous
  Country: US (occurrence: US)
  Receive Date: 20220902
  Receipt Date: 20221110
  Transmission Date: 20230113
  Serious: No
  Sender: FDA-Public Use
  Company Number: US-BRISTOL-MYERS SQUIBB COMPANY-2022-099599

PATIENT
  Age: 80 Year
  Sex: Male

DRUGS (1)
  1. REVLIMID [Suspect]
     Active Substance: LENALIDOMIDE
     Indication: Follicular lymphoma
     Dosage: FREQ : ^15 MG 1 DAILY 21 DAYS ON 7 DAYS OFF^
     Route: 048
     Dates: start: 202207

REACTIONS (2)
  - Drug intolerance [Unknown]
  - Treatment noncompliance [Unknown]
